FAERS Safety Report 4952316-8 (Version None)
Quarter: 2006Q1

REPORT INFORMATION
  Report Type: 
  Country: None (occurrence: None)
  Receive Date: 20060320
  Receipt Date: 20060308
  Transmission Date: 20060701
  Serious: Yes (Death)
  Sender: FDA-Public Use
  Company Number: 2006032757

PATIENT
  Age: 18 Month
  Sex: Female
  Weight: 10.8863 kg

DRUGS (1)
  1. UNISOM SLEEPLESS (DIPHENHYDRAMINE) [Suspect]
     Indication: OVERDOSE
     Dosage: UNSPECIFIED AMOUNT, ONCE, ORAL
     Route: 048
     Dates: start: 20060109, end: 20060109

REACTIONS (2)
  - ACCIDENTAL DRUG INTAKE BY CHILD [None]
  - DRUG ADMINISTRATION ERROR [None]
